FAERS Safety Report 21172273 (Version 1)
Quarter: 2022Q3

REPORT INFORMATION
  Report Type: Spontaneous
  Country: US (occurrence: US)
  Receive Date: 20220804
  Receipt Date: 20220804
  Transmission Date: 20221026
  Serious: Yes (Other)
  Sender: FDA-Public Use
  Company Number: US-COOPERSURGICAL, INC.-US-2022CPS002621

PATIENT
  Sex: Female

DRUGS (1)
  1. PARAGARD T 380A [Suspect]
     Active Substance: COPPER
     Indication: Contraception
     Dosage: UNK
     Route: 015
     Dates: start: 2015

REACTIONS (19)
  - Injury associated with device [Not Recovered/Not Resolved]
  - Infertility [Not Recovered/Not Resolved]
  - Disability [Not Recovered/Not Resolved]
  - Device breakage [Not Recovered/Not Resolved]
  - Foreign body in reproductive tract [Not Recovered/Not Resolved]
  - Complication of device removal [Not Recovered/Not Resolved]
  - Embedded device [Not Recovered/Not Resolved]
  - Pain [Not Recovered/Not Resolved]
  - Emotional distress [Not Recovered/Not Resolved]
  - Economic problem [Not Recovered/Not Resolved]
  - Stress [Not Recovered/Not Resolved]
  - Disturbance in attention [Not Recovered/Not Resolved]
  - Feeling of despair [Not Recovered/Not Resolved]
  - Malaise [Not Recovered/Not Resolved]
  - Anhedonia [Not Recovered/Not Resolved]
  - Apathy [Not Recovered/Not Resolved]
  - Impaired work ability [Not Recovered/Not Resolved]
  - Device defective [Unknown]
  - Discomfort [Not Recovered/Not Resolved]

NARRATIVE: CASE EVENT DATE: 20210101
